FAERS Safety Report 6997764-X (Version None)
Quarter: 2010Q3

REPORT INFORMATION
  Report Type: 
  Country: None (occurrence: None)
  Receive Date: 20100919
  Receipt Date: 20100915
  Transmission Date: 20110219
  Serious: Yes (Life-Threatening)
  Sender: FDA-Public Use
  Company Number: PK-BRISTOL-MYERS SQUIBB COMPANY-15289564

PATIENT
  Age: 45 Year
  Sex: Male
  Weight: 74 kg

DRUGS (4)
  1. CETUXIMAB [Suspect]
     Indication: COLORECTAL CANCER METASTATIC
     Dosage: RECENT INF: 30AUG2010(9TH INF).
     Route: 042
     Dates: start: 20100329
  2. IRINOTECAN HCL [Suspect]
     Indication: COLORECTAL CANCER METASTATIC
     Dosage: RECENT INF: 30AUG2010(9TH INF).
     Route: 042
     Dates: start: 20100329
  3. FLUOROURACIL [Suspect]
     Indication: COLORECTAL CANCER METASTATIC
     Dosage: RECENT INF: 30AUG2010(9TH INF);400MG/M2 BOLUS,2400MG/M2 46 HRS INFUSION.
     Route: 042
     Dates: start: 20100329
  4. FOLINIC ACID [Suspect]
     Indication: COLORECTAL CANCER METASTATIC
     Dosage: RECENT INF:30AUG2010 NO OF INF:9
     Route: 042
     Dates: start: 20100329

REACTIONS (1)
  - DEEP VEIN THROMBOSIS [None]
